FAERS Safety Report 8022441-6 (Version None)
Quarter: 2012Q1

REPORT INFORMATION
  Report Type: 
  Country: None (occurrence: None)
  Receive Date: 20120104
  Receipt Date: 20120102
  Transmission Date: 20120608
  Serious: Yes (Hospitalization)
  Sender: FDA-Public Use
  Company Number: DE-ROCHE-1027141

PATIENT
  Age: 74 Year
  Sex: Female
  Weight: 60 kg

DRUGS (18)
  1. SIMVASTATIN [Concomitant]
     Dosage: IN THE EVENING
     Dates: start: 20110405, end: 20110701
  2. FRAXIPARIN [Concomitant]
     Dates: start: 20110405
  3. PANTOPRAZOLE SODIUM [Concomitant]
     Dosage: FREQUENCY: 20 MG IN THE EVENING.
     Dates: start: 20110405
  4. KEPPRA [Concomitant]
     Dates: start: 20110405
  5. IRINOTECAN HYDROCHLORIDE [Suspect]
     Indication: GLIOBLASTOMA MULTIFORME
     Dosage: DATE OF LAST DOSE PRIOR TO SAE: 09 DEC 2011
     Route: 042
     Dates: end: 20111221
  6. PANTOP-D [Concomitant]
     Dates: start: 20110329
  7. OLMESARTAN MEDOXOMIL [Concomitant]
     Dosage: IN THE MORNING
     Dates: start: 20110405
  8. JODID [Concomitant]
     Dosage: IN THE EVENING
     Dates: start: 20110405
  9. ESCITALOPRAM [Concomitant]
     Dates: start: 20110806
  10. TEMOZOLOMIDE [Suspect]
     Indication: GLIOBLASTOMA MULTIFORME
     Dosage: TEMPORARILY INTERRUPTED, DATE OF LAST DOSE PRIOR TO SAE: 06 JUNE 2011.
     Route: 048
     Dates: start: 20110502, end: 20110606
  11. BISOPROLOL [Concomitant]
     Dosage: 5 MG IN THE MORNING AND 2.5 MG IN THE EVENING
     Dates: start: 20110405
  12. IBUPROFEN TABLETS [Concomitant]
     Dates: start: 20110405, end: 20110701
  13. CORNEREGEL [Concomitant]
     Dates: start: 20111207
  14. FORTECORTIN [Concomitant]
     Dates: start: 20111206
  15. DEXAMETHASONE [Concomitant]
     Dosage: TOTAL DAILY DOSE: 1/4 MG
     Dates: start: 20110511
  16. AVASTIN [Suspect]
     Indication: GLIOBLASTOMA MULTIFORME
     Dosage: DATE OF LAST DOSE PRIOR TO SAE: 09 DEC 2011
     Route: 042
     Dates: end: 20111221
  17. INSIDON [Concomitant]
     Dates: start: 20110405
  18. NOVALGIN [Concomitant]
     Dosage: FORM: DROPS

REACTIONS (1)
  - IMPAIRED HEALING [None]
